FAERS Safety Report 15028901 (Version 2)
Quarter: 2018Q4

REPORT INFORMATION
  Report Type: Spontaneous
  Country: US (occurrence: US)
  Receive Date: 20180619
  Receipt Date: 20181010
  Transmission Date: 20190204
  Serious: No
  Sender: FDA-Public Use
  Company Number: US-SA-2018SA154796

PATIENT
  Sex: Female

DRUGS (1)
  1. AUBAGIO [Suspect]
     Active Substance: TERIFLUNOMIDE
     Indication: MULTIPLE SCLEROSIS
     Dosage: 14 MG, QD
     Route: 048
     Dates: start: 20180127

REACTIONS (8)
  - Hysterectomy [Unknown]
  - Peroneal nerve palsy [Not Recovered/Not Resolved]
  - Balance disorder [Unknown]
  - Aphasia [Unknown]
  - Fatigue [Unknown]
  - Enuresis [Unknown]
  - Loss of personal independence in daily activities [Not Recovered/Not Resolved]
  - Fall [Unknown]
